FAERS Safety Report 18242252 (Version 3)
Quarter: 2021Q1

REPORT INFORMATION
  Report Type: Spontaneous
  Country: US (occurrence: US)
  Receive Date: 20200908
  Receipt Date: 20210202
  Transmission Date: 20210419
  Serious: Yes (Other)
  Sender: FDA-Public Use
  Company Number: US-GILEAD-2020-0493789

PATIENT
  Age: 53 Year
  Sex: Male

DRUGS (2)
  1. GENVOYA [Concomitant]
     Active Substance: COBICISTAT\ELVITEGRAVIR\EMTRICITABINE\TENOFOVIR ALAFENAMIDE FUMARATE
     Indication: HIV INFECTION
  2. TRUVADA [Suspect]
     Active Substance: EMTRICITABINE\TENOFOVIR DISOPROXIL FUMARATE
     Indication: HIV INFECTION
     Dosage: UNK
     Route: 048
     Dates: start: 20120501, end: 20170207

REACTIONS (7)
  - Blood creatinine increased [Not Recovered/Not Resolved]
  - Renal failure [Unknown]
  - Bone density decreased [Unknown]
  - Glomerular filtration rate increased [Unknown]
  - Protein total abnormal [Not Recovered/Not Resolved]
  - Tooth loss [Unknown]
  - Protein total increased [Unknown]

NARRATIVE: CASE EVENT DATE: 20140424
